FAERS Safety Report 4412524-1 (Version None)
Quarter: 2004Q2

REPORT INFORMATION
  Report Type: 
  Country: None (occurrence: None)
  Receive Date: 20040630
  Receipt Date: 20040401
  Transmission Date: 20050107
  Serious: No
  Sender: FDA-Public Use
  Company Number: 04P-163-0255971-00

PATIENT
  Age: 53 Year
  Sex: Female

DRUGS (16)
  1. HUMIRA [Suspect]
     Indication: RHEUMATOID ARTHRITIS
     Dosage: 40 MG, 1 IN 2 WK, SUBCUTANEOUS
     Route: 058
     Dates: start: 20040101
  2. CONJUGATED ESTROGEN [Concomitant]
  3. SERTRALINE HYDROCHLORIDE [Concomitant]
  4. OMEPRAZOLE [Concomitant]
  5. ZOLPIDEM TARTRATE [Concomitant]
  6. CLONAZEPAM [Concomitant]
  7. ALENDRONATE SODIUM [Concomitant]
  8. METHADONE HCL [Concomitant]
  9. BUSPIRONE HCL [Concomitant]
  10. OLANZAPINE [Concomitant]
  11. MIRTAZAPINE [Concomitant]
  12. TRIAMCINOLONE ACETONIDE [Concomitant]
  13. CORTISONE [Concomitant]
  14. SENOKOT [Concomitant]
  15. CALCIUM [Concomitant]
  16. MULTI-VITAMINS [Concomitant]

REACTIONS (1)
  - FATIGUE [None]
